FAERS Safety Report 8832477 (Version 1)
Quarter: 2012Q4

REPORT INFORMATION
  Report Type: Spontaneous
  Country: DK (occurrence: None)
  Receive Date: 20121005
  Receipt Date: 20121005
  Transmission Date: 20130627
  Serious: Yes (Other)
  Sender: FDA-Public Use
  Company Number: 2012MA011828

PATIENT
  Age: 32 Year
  Sex: Male

DRUGS (1)
  1. FLUOXETINE [Suspect]
     Indication: ANXIETY
     Route: 048
     Dates: start: 20120515

REACTIONS (5)
  - Muscle spasms [None]
  - Initial insomnia [None]
  - Hyperhidrosis [None]
  - Middle insomnia [None]
  - Temperature intolerance [None]
